FAERS Safety Report 9913583 (Version 1)
Quarter: 2014Q1

REPORT INFORMATION
  Report Type: Spontaneous
  Country: JP (occurrence: JP)
  Receive Date: 20140220
  Receipt Date: 20140220
  Transmission Date: 20141002
  Serious: Yes (Hospitalization)
  Sender: FDA-Public Use
  Company Number: JP-SA-2014SA018772

PATIENT
  Age: 20 Year
  Sex: Female

DRUGS (14)
  1. SERTRALINE HYDROCHLORIDE [Suspect]
     Indication: DEPRESSION
     Route: 048
  2. SERTRALINE HYDROCHLORIDE [Suspect]
     Indication: PANIC DISORDER
     Route: 048
  3. LORAZEPAM [Suspect]
     Indication: DEPRESSION
     Route: 048
  4. LORAZEPAM [Suspect]
     Indication: PANIC DISORDER
     Route: 048
  5. ZOLPIDEM [Suspect]
     Indication: DEPRESSION
     Route: 048
  6. ZOLPIDEM [Suspect]
     Indication: PANIC DISORDER
     Route: 048
  7. SODIUM VALPROATE [Suspect]
     Indication: DEPRESSION
     Route: 048
  8. SODIUM VALPROATE [Suspect]
     Indication: PANIC DISORDER
     Route: 048
  9. LAMOTRIGINE [Suspect]
     Indication: DEPRESSION
     Route: 048
  10. LAMOTRIGINE [Suspect]
     Indication: PANIC DISORDER
     Route: 048
  11. REBAMIPIDE [Suspect]
     Indication: DEPRESSION
     Route: 048
  12. REBAMIPIDE [Suspect]
     Indication: PANIC DISORDER
     Route: 048
  13. RAMELTEON [Suspect]
     Indication: DEPRESSION
     Route: 048
  14. RAMELTEON [Suspect]
     Indication: PANIC DISORDER
     Route: 048

REACTIONS (1)
  - Drug reaction with eosinophilia and systemic symptoms [Recovering/Resolving]
